FAERS Safety Report 9789914 (Version 3)
Quarter: 2014Q2

REPORT INFORMATION
  Report Type: Report from Study
  Country: IN (occurrence: IN)
  Receive Date: 20131231
  Receipt Date: 20140605
  Transmission Date: 20141212
  Serious: Yes (Hospitalization)
  Sender: FDA-Public Use
  Company Number: IN-ROCHE-1322166

PATIENT
  Age: 61 Year
  Sex: Female
  Weight: 58 kg

DRUGS (20)
  1. TOCILIZUMAB [Suspect]
     Indication: RHEUMATOID ARTHRITIS
     Dosage: MOST RECENT DOSE PRIOR TO EVENT ON 06/NOV/2013
     Route: 042
     Dates: start: 20120907
  2. VAXIGRIP [Concomitant]
     Route: 058
     Dates: start: 20130115, end: 20130115
  3. PANTOPRAZOL [Concomitant]
     Route: 042
     Dates: start: 20130109, end: 20130111
  4. PANTOPRAZOL [Concomitant]
     Route: 048
     Dates: start: 20130112, end: 20130224
  5. PANTOPRAZOL [Concomitant]
     Route: 048
     Dates: start: 20130225
  6. METHOTREXATE [Concomitant]
     Indication: RHEUMATOID ARTHRITIS
     Route: 065
     Dates: start: 20100429
  7. FOLIC ACID [Concomitant]
     Route: 048
     Dates: start: 20100429
  8. HYDROXYCHLOROQUINE [Concomitant]
     Indication: RHEUMATOID ARTHRITIS
     Route: 048
     Dates: start: 20100429
  9. WYSOLONE [Concomitant]
     Indication: RHEUMATOID ARTHRITIS
     Route: 048
     Dates: end: 20130827
  10. WYSOLONE [Concomitant]
     Route: 048
     Dates: start: 20130828, end: 20130903
  11. WYSOLONE [Concomitant]
     Route: 048
     Dates: start: 20130904
  12. SHELCAL [Concomitant]
     Route: 048
     Dates: start: 20100429, end: 20121003
  13. PARACETAMOL [Concomitant]
     Route: 048
     Dates: start: 20130109, end: 20130110
  14. PARACETAMOL [Concomitant]
     Route: 048
     Dates: start: 20131229, end: 20131229
  15. NADOXIN CREAM [Concomitant]
     Indication: VASCULITIS
     Route: 061
     Dates: start: 20130712
  16. SPORIDEX [Concomitant]
     Indication: VASCULITIS
     Route: 048
     Dates: start: 20130828, end: 20130903
  17. RANTAC [Concomitant]
     Route: 042
     Dates: start: 20131226, end: 20131230
  18. RANTAC [Concomitant]
     Route: 048
     Dates: start: 20140101
  19. HYDROCORT [Concomitant]
     Indication: PNEUMONIA
     Route: 042
     Dates: start: 20130109, end: 20130110
  20. HYDROCORT [Concomitant]
     Route: 042
     Dates: start: 20130111, end: 20130111

REACTIONS (2)
  - Wound [Recovered/Resolved]
  - Vasculitis [Recovered/Resolved]
